FAERS Safety Report 5903666-X (Version None)
Quarter: 2008Q3

REPORT INFORMATION
  Report Type: 
  Country: None (occurrence: None)
  Receive Date: 20080919
  Receipt Date: 20080806
  Transmission Date: 20090109
  Serious: No
  Sender: FDA-Public Use
  Company Number: US-WYE-H05425208

PATIENT
  Age: 48 Year
  Sex: Female

DRUGS (1)
  1. PRISTIQ [Suspect]
     Indication: HOT FLUSH
     Dosage: 50 MG 1X PER 1 DAY, ORAL
     Route: 047
     Dates: start: 20080801, end: 20080805

REACTIONS (2)
  - HEADACHE [None]
  - OROPHARYNGEAL PAIN [None]
